FAERS Safety Report 15454925 (Version 1)
Quarter: 2018Q4

REPORT INFORMATION
  Report Type: Spontaneous
  Country: US (occurrence: US)
  Receive Date: 20181002
  Receipt Date: 20181002
  Transmission Date: 20190204
  Serious: Yes (Hospitalization)
  Sender: FDA-Public Use
  Company Number: US-BAYER-2018-180224

PATIENT
  Age: 70 Year

DRUGS (3)
  1. ADEMPAS [Suspect]
     Active Substance: RIOCIGUAT
     Indication: PULMONARY HYPERTENSION
     Dosage: 2 MG, TID
  2. ADEMPAS [Suspect]
     Active Substance: RIOCIGUAT
     Indication: PULMONARY HYPERTENSION
     Dosage: 1 MG, TID
     Dates: start: 20180717
  3. ADEMPAS [Suspect]
     Active Substance: RIOCIGUAT
     Indication: PULMONARY HYPERTENSION
     Dosage: 2 MG, TID
     Dates: end: 20180917

REACTIONS (8)
  - Haemoptysis [Recovered/Resolved]
  - Traumatic lung injury [None]
  - Feeling abnormal [None]
  - Loss of personal independence in daily activities [None]
  - Fatigue [None]
  - Product dose omission [None]
  - Fatigue [Recovered/Resolved]
  - Lung disorder [None]

NARRATIVE: CASE EVENT DATE: 20180827
